FAERS Safety Report 6859624-4 (Version None)
Quarter: 2010Q3

REPORT INFORMATION
  Report Type: 
  Country: None (occurrence: None)
  Receive Date: 20100719
  Receipt Date: 20080926
  Transmission Date: 20110219
  Serious: No
  Sender: FDA-Public Use
  Company Number: US-PFIZER INC-2008019645

PATIENT
  Sex: Female
  Weight: 97.52 kg

DRUGS (11)
  1. CHANTIX [Suspect]
     Indication: SMOKING CESSATION THERAPY
     Dates: start: 20071019
  2. MICARDIS [Concomitant]
     Indication: BLOOD PRESSURE ABNORMAL
  3. LUNESTA [Concomitant]
  4. ZETIA [Concomitant]
  5. MONTELUKAST SODIUM [Concomitant]
     Indication: HYPERSENSITIVITY
  6. NEXIUM [Concomitant]
     Indication: GASTROOESOPHAGEAL REFLUX DISEASE
  7. METFORMIN HCL [Concomitant]
     Indication: DIABETES MELLITUS
  8. LEXAPRO [Concomitant]
     Indication: DEPRESSION
  9. ARTHROTEC [Concomitant]
     Indication: ARTHRITIS
  10. ZYRTEC [Concomitant]
     Indication: HYPERSENSITIVITY
  11. DIET FORMULATIONS FOR TREATMENT OF OBESITY [Concomitant]

REACTIONS (1)
  - ANGER [None]
